FAERS Safety Report 10612960 (Version 1)
Quarter: 2014Q4

REPORT INFORMATION
  Report Type: Spontaneous
  Country: IL (occurrence: IL)
  Receive Date: 20141127
  Receipt Date: 20141127
  Transmission Date: 20150529
  Serious: Yes (Hospitalization, Other)
  Sender: FDA-Public Use
  Company Number: IL-009507513-1411ISR012706

PATIENT
  Age: 62 Year
  Sex: Female

DRUGS (1)
  1. FOSALAN [Suspect]
     Active Substance: ALENDRONATE SODIUM
     Dosage: UNK
     Route: 048

REACTIONS (2)
  - Fall [Unknown]
  - Hip fracture [Unknown]
